FAERS Safety Report 24310657 (Version 2)
Quarter: 2024Q3

REPORT INFORMATION
  Report Type: Spontaneous
  Country: GB (occurrence: GB)
  Receive Date: 20240912
  Receipt Date: 20240927
  Transmission Date: 20241016
  Serious: Yes (Hospitalization)
  Sender: TEVA
  Company Number: GB-TEVA-VS-3241130

PATIENT
  Age: 69 Year
  Sex: Female

DRUGS (1)
  1. DICLOFENAC [Suspect]
     Active Substance: DICLOFENAC
     Indication: Back pain
     Route: 065

REACTIONS (4)
  - Intestinal diaphragm disease [Recovered/Resolved]
  - Blood albumin decreased [Recovered/Resolved]
  - Haemoglobin decreased [Recovered/Resolved]
  - Iron deficiency anaemia [Recovered/Resolved]
